FAERS Safety Report 20731482 (Version 6)
Quarter: 2023Q4

REPORT INFORMATION
  Report Type: Spontaneous
  Country: US (occurrence: US)
  Receive Date: 20220420
  Receipt Date: 20231115
  Transmission Date: 20240109
  Serious: No
  Sender: FDA-Public Use
  Company Number: GB-SA-SAC20220417000049

PATIENT
  Age: 59 Year
  Sex: Male

DRUGS (19)
  1. DUPIXENT [Suspect]
     Active Substance: DUPILUMAB
     Indication: Dermatitis atopic
     Dosage: 300 MG, QOW
     Route: 058
     Dates: start: 20210818
  2. CEVIMELINE [Concomitant]
     Active Substance: CEVIMELINE
     Dosage: UNK
  3. CICLOPIROX [Concomitant]
     Active Substance: CICLOPIROX\TOCOPHEROL
     Dosage: UNK
  4. DIAZEPAM [Concomitant]
     Active Substance: DIAZEPAM
     Dosage: UNK MG
  5. PROMETHAZINE HYDROCHLORIDE [Concomitant]
     Active Substance: PROMETHAZINE HYDROCHLORIDE
     Dosage: UNK
  6. SILDENAFIL [Concomitant]
     Active Substance: SILDENAFIL
     Dosage: UNK
  7. TERBINAFINE [Concomitant]
     Active Substance: TERBINAFINE
     Dosage: UNK
  8. URSODIOL [Concomitant]
     Active Substance: URSODIOL
     Dosage: UNK
  9. AMLODIPINE [Concomitant]
     Active Substance: AMLODIPINE BESYLATE
     Dosage: UNK
     Route: 048
  10. TESTOSTERONE [Concomitant]
     Active Substance: TESTOSTERONE
     Dosage: UNK
  11. CYCLOBENZAPRINE [Concomitant]
     Active Substance: CYCLOBENZAPRINE
     Dosage: 10 MG
     Route: 048
  12. HYDROCODONE BITARTRATE AND ACETAMINOPHEN [Concomitant]
     Active Substance: ACETAMINOPHEN\HYDROCODONE BITARTRATE
     Dosage: UNK
     Route: 048
  13. METHOCARBAMOL [Concomitant]
     Active Substance: METHOCARBAMOL
     Dosage: UNK MG
  14. IBUPROFEN [Concomitant]
     Active Substance: IBUPROFEN
     Dosage: UNK
  15. AMLODIPINE [Concomitant]
     Active Substance: AMLODIPINE BESYLATE
     Dosage: UNK
  16. METHOCARBAMOL [Concomitant]
     Active Substance: METHOCARBAMOL
     Dosage: UNK
  17. CYCLOBENZAPRINE [Concomitant]
     Active Substance: CYCLOBENZAPRINE
  18. TRAMADOL HCL [Concomitant]
     Active Substance: TRAMADOL HYDROCHLORIDE
  19. ZYRTEC [Concomitant]
     Active Substance: CETIRIZINE HYDROCHLORIDE

REACTIONS (6)
  - Sleep disorder [Unknown]
  - Fatigue [Unknown]
  - Dermatitis atopic [Unknown]
  - Injection site reaction [Unknown]
  - Drug ineffective [Unknown]
  - Rash [Not Recovered/Not Resolved]
